FAERS Safety Report 5608232-1 (Version None)
Quarter: 2008Q1

REPORT INFORMATION
  Report Type: 
  Country: None (occurrence: None)
  Receive Date: 20080125
  Receipt Date: 20080114
  Transmission Date: 20080703
  Serious: Yes (Death)
  Sender: FDA-Public Use
  Company Number: 2008-00151

PATIENT
  Age: 71 Year
  Sex: Female

DRUGS (9)
  1. VELCADE [Suspect]
     Indication: MULTIPLE MYELOMA
     Dosage: INTRAVENOUS
     Route: 042
     Dates: start: 20070214, end: 20070313
  2. MELPHALAN(MELPHALAN) [Suspect]
     Indication: DRUG USE FOR UNKNOWN INDICATION
     Dosage: 100.00 MG, INTRAVENOUS
     Route: 042
     Dates: start: 20070326
  3. CYCLOPHOSPHAMIDE [Suspect]
     Indication: DRUG USE FOR UNKNOWN INDICATION
     Dosage: 3.00 G, INTRAVENOUS
     Route: 042
     Dates: start: 20070611
  4. ETOPOPHOS PRESERVATIVE FREE [Suspect]
     Indication: DRUG USE FOR UNKNOWN INDICATION
     Dates: start: 20070710
  5. DEXAMETHASONE TAB [Suspect]
  6. AMBISOME [Concomitant]
  7. CASPOFUNGIN (CAPOFUNGIN) [Concomitant]
  8. TRIFLUCAN [Concomitant]
  9. LYRICA [Concomitant]

REACTIONS (11)
  - CANDIDIASIS [None]
  - CARDIAC FAILURE [None]
  - DEPRESSION [None]
  - DISEASE PROGRESSION [None]
  - GUILLAIN-BARRE SYNDROME [None]
  - HYPERVISCOSITY SYNDROME [None]
  - ILEUS PARALYTIC [None]
  - MULTI-ORGAN FAILURE [None]
  - PANCYTOPENIA [None]
  - PSEUDOMONAL SEPSIS [None]
  - STAPHYLOCOCCAL SEPSIS [None]
